FAERS Safety Report 6057879-X (Version None)
Quarter: 2009Q1

REPORT INFORMATION
  Report Type: 
  Country: None (occurrence: None)
  Receive Date: 20090126
  Receipt Date: 20090116
  Transmission Date: 20090719
  Serious: Yes (Hospitalization)
  Sender: FDA-Public Use
  Company Number: JPI-P-005901

PATIENT
  Age: 40 Year
  Sex: Female
  Weight: 95.2554 kg

DRUGS (5)
  1. XYREM [Suspect]
     Indication: SLEEP APNOEA SYNDROME
     Dosage: 3 GM (1.5 GM, 2 IN 1 D), ORAL; 6 GM (3 G, 2 IN 1 D), ORAL
     Route: 048
     Dates: start: 20060912
  2. XYREM [Suspect]
     Indication: SLEEP APNOEA SYNDROME
     Dosage: 3 GM (1.5 GM, 2 IN 1 D), ORAL; 6 GM (3 G, 2 IN 1 D), ORAL
     Route: 048
     Dates: start: 20081113
  3. VENLAFAXINE HYDROCHLORIDE [Concomitant]
  4. UNSPECIFIED MULTIVITAMIN [Concomitant]
  5. AMPHETAMINE AND DEXTROAMPHETAMINE SALTS [Concomitant]

REACTIONS (3)
  - BENIGN INTRACRANIAL HYPERTENSION [None]
  - LOSS OF CONSCIOUSNESS [None]
  - VITAMIN B12 DEFICIENCY [None]
